FAERS Safety Report 9312064 (Version 1)
Quarter: 2013Q2

REPORT INFORMATION
  Report Type: Spontaneous
  Country: US (occurrence: US)
  Receive Date: 20130528
  Receipt Date: 20130528
  Transmission Date: 20140414
  Serious: Yes (Other)
  Sender: FDA-Public Use
  Company Number: US-PFIZER INC-2013158241

PATIENT
  Age: 59 Year
  Sex: Female

DRUGS (1)
  1. METHOTREXATE SODIUM [Suspect]
     Indication: LYMPHOMA
     Dosage: 400 UG/0.1 ML, WEEKLY (12 WEEKLY INJECTIONS)
     Route: 047

REACTIONS (1)
  - Corneal disorder [Recovered/Resolved]
